FAERS Safety Report 11301342 (Version 1)
Quarter: 2015Q3

REPORT INFORMATION
  Report Type: Spontaneous
  Country: JP (occurrence: None)
  Receive Date: 20150722
  Receipt Date: 20150722
  Transmission Date: 20151125
  Serious: Yes (Other)
  Sender: FDA-Public Use
  Company Number: INT_00837_2015

PATIENT
  Age: 64 Year
  Sex: Male

DRUGS (2)
  1. DOCETAXEL (DOCETAXEL) [Suspect]
     Active Substance: DOCETAXEL
     Indication: ANAPLASTIC THYROID CANCER
     Dosage: DAY 1 EVERY 4 WEEKS; 3 COURSES
  2. CISPLATIN (CISPLATIN) (HQ SPECIALTY) [Suspect]
     Active Substance: CISPLATIN
     Indication: ANAPLASTIC THYROID CANCER
     Dosage: DAY 1 EVERY 4 WEEKS, 3 COURSES

REACTIONS (3)
  - Febrile neutropenia [None]
  - Anaplastic thyroid cancer [None]
  - Neoplasm recurrence [None]
